FAERS Safety Report 17787836 (Version 1)
Quarter: 2020Q3

REPORT INFORMATION
  Report Type: Spontaneous
  Country: CN (occurrence: CN)
  Receive Date: 20200514
  Receipt Date: 20200514
  Transmission Date: 20201104
  Serious: Yes (Other)
  Sender: FDA-Public Use
  Company Number: CN-ASTRAZENECA-2020SE54414

PATIENT
  Age: 58 Year
  Sex: Female

DRUGS (2)
  1. CATEQUENTINIB. [Suspect]
     Active Substance: CATEQUENTINIB
     Indication: NON-SMALL CELL LUNG CANCER
     Route: 065
  2. TAGRISSO [Suspect]
     Active Substance: OSIMERTINIB
     Indication: NON-SMALL CELL LUNG CANCER
     Route: 048

REACTIONS (10)
  - General physical health deterioration [Recovering/Resolving]
  - Carcinoembryonic antigen increased [Recovering/Resolving]
  - Myalgia [Recovering/Resolving]
  - Product dose omission issue [Recovered/Resolved]
  - Arthralgia [Recovering/Resolving]
  - Appetite disorder [Recovering/Resolving]
  - Constipation [Recovering/Resolving]
  - Tumour marker increased [Recovering/Resolving]
  - Pruritus [Recovering/Resolving]
  - Diarrhoea [Recovering/Resolving]
